FAERS Safety Report 6982071-1 (Version None)
Quarter: 2010Q3

REPORT INFORMATION
  Report Type: 
  Country: None (occurrence: None)
  Receive Date: 20100909
  Receipt Date: 20100829
  Transmission Date: 20110219
  Serious: Yes (Disabling)
  Sender: FDA-Public Use
  Company Number: TPG2010A00466

PATIENT
  Age: 71 Year
  Sex: Male

DRUGS (2)
  1. ACTOPLUS MET [Suspect]
     Indication: DIABETES MELLITUS
     Dosage: PIOGLITAZONE HYDROCHLORIDE 30 MG/D AND METFORMIN HYDROCHLORIDE 1700 MG/D PER ORAL
     Route: 048
     Dates: start: 20100423, end: 20100726
  2. DIAMICRON (GLICLAZIDE) [Concomitant]

REACTIONS (1)
  - PLEURAL EFFUSION [None]
